FAERS Safety Report 14934064 (Version 1)
Quarter: 2018Q2

REPORT INFORMATION
  Report Type: Spontaneous
  Country: US (occurrence: US)
  Receive Date: 20180524
  Receipt Date: 20180524
  Transmission Date: 20180711
  Serious: Yes (Hospitalization)
  Sender: FDA-Public Use
  Company Number: US-BEH-2018090860

PATIENT
  Age: 28 Year
  Sex: Female

DRUGS (1)
  1. HIZENTRA [Suspect]
     Active Substance: HUMAN IMMUNOGLOBULIN G
     Indication: IMMUNODEFICIENCY
     Dosage: 20 G, EVERY 3 DAYS
     Route: 058
     Dates: start: 20140621

REACTIONS (2)
  - Urinary tract infection [Unknown]
  - Femur fracture [Unknown]

NARRATIVE: CASE EVENT DATE: 20180510
